FAERS Safety Report 5784591-4 (Version None)
Quarter: 2008Q2

REPORT INFORMATION
  Report Type: 
  Country: None (occurrence: None)
  Receive Date: 20080624
  Receipt Date: 20080617
  Transmission Date: 20081010
  Serious: Yes (Hospitalization)
  Sender: FDA-Public Use
  Company Number: JP-AVENTIS-200811034JP

PATIENT
  Age: 77 Year
  Sex: Male
  Weight: 62 kg

DRUGS (6)
  1. TAXOTERE [Suspect]
     Route: 041
     Dates: start: 20080312, end: 20080312
  2. ESTRACYT                           /00327002/ [Suspect]
     Indication: PROSTATE CANCER
     Route: 048
     Dates: start: 20080311, end: 20080315
  3. ALLOID G [Suspect]
     Indication: PROSTATE CANCER
     Route: 048
     Dates: start: 20080311, end: 20080315
  4. DECADRON PHOSPHATE [Suspect]
     Indication: PREMEDICATION
     Route: 041
     Dates: start: 20080311, end: 20080312
  5. LEUPROLIDE ACETATE [Concomitant]
     Indication: PROSTATE CANCER
     Dosage: DOSE: 11-25 MG EVERY 12 WEEKS
     Route: 058
     Dates: start: 20040801
  6. DECADRON [Concomitant]
     Indication: PROSTATE CANCER
     Route: 048
     Dates: start: 20070921

REACTIONS (3)
  - DYSURIA [None]
  - NEUTROPHIL COUNT DECREASED [None]
  - URINARY RETENTION [None]
